FAERS Safety Report 10081406 (Version 1)
Quarter: 2014Q2

REPORT INFORMATION
  Report Type: Spontaneous
  Country: US (occurrence: US)
  Receive Date: 20140416
  Receipt Date: 20140416
  Transmission Date: 20141212
  Serious: No
  Sender: FDA-Public Use
  Company Number: US-PFIZER INC-2014105198

PATIENT
  Age: 33 Year
  Sex: Female
  Weight: 102.04 kg

DRUGS (3)
  1. EFFEXOR XR [Suspect]
     Indication: DEPRESSION
     Dosage: 150 MG, DAILY
     Route: 048
     Dates: end: 201404
  2. TRILIPIX [Concomitant]
     Indication: BLOOD CHOLESTEROL
     Dosage: 135 MG, DAILY
  3. XANAX [Concomitant]
     Indication: ANXIETY
     Dosage: 0.1 MG, 2X/DAY

REACTIONS (1)
  - Depression [Unknown]
